FAERS Safety Report 4688759-X (Version None)
Quarter: 2005Q2

REPORT INFORMATION
  Report Type: 
  Country: None (occurrence: None)
  Receive Date: 20050613
  Receipt Date: 20050602
  Transmission Date: 20051028
  Serious: Yes (Other)
  Sender: FDA-Public Use
  Company Number: US-JNJFOC-20050602052

PATIENT

DRUGS (1)
  1. ORTHOCLONE OKT3 [Suspect]
     Indication: KIDNEY TRANSPLANT REJECTION
     Dosage: UNSPECIFIED DOSE REGIMEN AND THERAPY DATES
     Route: 065

REACTIONS (1)
  - POLYOMAVIRUS INTERSTITIAL NEPHRITIS [None]
